FAERS Safety Report 9466099 (Version 1)
Quarter: 2013Q3

REPORT INFORMATION
  Report Type: Spontaneous
  Country: TH (occurrence: TH)
  Receive Date: 20130820
  Receipt Date: 20130820
  Transmission Date: 20140515
  Serious: Yes (Hospitalization, Other)
  Sender: FDA-Public Use
  Company Number: PHHY2013TH088348

PATIENT
  Age: 43 Year
  Sex: Female

DRUGS (3)
  1. TERBINAFINE [Suspect]
     Route: 048
  2. ITRACONAZOLE [Suspect]
     Route: 048
  3. NATAMYCIN [Suspect]
     Route: 061

REACTIONS (4)
  - Eye infection [Unknown]
  - Ulcerative keratitis [Unknown]
  - Corneal thinning [Unknown]
  - Corneal perforation [Unknown]
